FAERS Safety Report 5344548-4 (Version None)
Quarter: 2007Q2

REPORT INFORMATION
  Report Type: 
  Country: None (occurrence: None)
  Receive Date: 20070604
  Receipt Date: 20070524
  Transmission Date: 20071010
  Serious: Yes (Hospitalization)
  Sender: FDA-Public Use
  Company Number: JP-PFIZER INC-2007042745

PATIENT
  Age: 81 Year
  Sex: Female

DRUGS (5)
  1. LIPITOR [Suspect]
     Dosage: DAILY DOSE:10MG
     Route: 048
  2. RISEDRONIC ACID [Suspect]
     Dosage: DAILY DOSE:10MG
     Route: 048
  3. BLOPRESS [Suspect]
     Dosage: DAILY DOSE:8MG
     Route: 048
  4. ALFACALCIDOL [Suspect]
     Dosage: DAILY DOSE:1MCG
     Route: 048
  5. LAFUTIDINE [Suspect]
     Dosage: DAILY DOSE:10MG
     Route: 048

REACTIONS (1)
  - LIVER DISORDER [None]
